FAERS Safety Report 20466006 (Version 2)
Quarter: 2022Q1

REPORT INFORMATION
  Report Type: Other
  Country: US (occurrence: None)
  Receive Date: 20220212
  Receipt Date: 20220314
  Transmission Date: 20220423
  Serious: No
  Sender: FDA-Public Use
  Company Number: US-ROCHE-2364169

PATIENT
  Age: 33 Year
  Sex: Male
  Weight: 104.8 kg

DRUGS (6)
  1. OCREVUS [Suspect]
     Active Substance: OCRELIZUMAB
     Indication: Relapsing-remitting multiple sclerosis
     Dosage: 300MG ON DAY 1 AND DAY 15 LATER 600MG EVERY 6 MONTHS
     Route: 042
     Dates: start: 20190708
  2. OCREVUS [Suspect]
     Active Substance: OCRELIZUMAB
     Route: 042
     Dates: start: 20190722
  3. COENZYME Q10 [Concomitant]
     Active Substance: DIETARY SUPPLEMENT\UBIDECARENONE
     Route: 048
     Dates: start: 20160101
  4. FISH OIL [Concomitant]
     Active Substance: FISH OIL
     Route: 048
     Dates: start: 20120101
  5. PRASTERONE [Concomitant]
     Active Substance: PRASTERONE
     Route: 048
     Dates: start: 20130101
  6. CANNABIDIOL\HERBALS [Concomitant]
     Active Substance: CANNABIDIOL\HERBALS
     Indication: Pain
     Dates: start: 20190601

REACTIONS (9)
  - Insomnia [Recovered/Resolved]
  - Back pain [Not Recovered/Not Resolved]
  - Hyperaesthesia [Recovered/Resolved]
  - Fatigue [Recovered/Resolved]
  - Feeling abnormal [Not Recovered/Not Resolved]
  - Vertigo [Not Recovered/Not Resolved]
  - Tinnitus [Not Recovered/Not Resolved]
  - Pain [Unknown]
  - COVID-19 [Recovered/Resolved]

NARRATIVE: CASE EVENT DATE: 20190708
